FAERS Safety Report 4471399-5 (Version None)
Quarter: 2004Q4

REPORT INFORMATION
  Report Type: 
  Country: None (occurrence: None)
  Receive Date: 20041007
  Receipt Date: 20041004
  Transmission Date: 20050328
  Serious: Yes (Hospitalization)
  Sender: FDA-Public Use
  Company Number: 04-10-1378

PATIENT
  Age: 52 Year
  Sex: Female

DRUGS (1)
  1. CLOZAPINE [Suspect]
     Indication: SCHIZOAFFECTIVE DISORDER
     Dosage: 200MG QD ORAL
     Route: 048
     Dates: start: 20040901

REACTIONS (3)
  - DEHYDRATION [None]
  - DIARRHOEA [None]
  - GASTROINTESTINAL DISORDER [None]
